FAERS Safety Report 9536078 (Version 1)
Quarter: 2013Q2

REPORT INFORMATION
  Report Type: Spontaneous
  Country: US (occurrence: None)
  Receive Date: 20130507
  Receipt Date: 20130507
  Transmission Date: 20140414
  Serious: No
  Sender: FDA-Public Use
  Company Number: PHEH2012US024134

PATIENT
  Age: 7 Year
  Sex: Male

DRUGS (5)
  1. VIMPAT (LACOSAMIDE) [Concomitant]
  2. KEPPRA (LEVETIRACETAM) [Concomitant]
  3. LYSINE (LYSINE) [Concomitant]
  4. SINGULAIR [Concomitant]
  5. AFINITOR (RAD) [Suspect]
     Indication: BRAIN NEOPLASM BENIGN
     Dates: start: 20110907

REACTIONS (2)
  - Nasopharyngitis [None]
  - Cough [None]
